FAERS Safety Report 8244662-X (Version None)
Quarter: 2012Q1

REPORT INFORMATION
  Report Type: 
  Country: None (occurrence: None)
  Receive Date: 20120329
  Receipt Date: 20120216
  Transmission Date: 20120608
  Serious: No
  Sender: FDA-Public Use
  Company Number: US-MYLANLABS-2011S1026294

PATIENT
  Age: 47 Year
  Sex: Female

DRUGS (5)
  1. MIRALAX /00754501/ [Concomitant]
     Indication: LAXATIVE SUPPORTIVE CARE
  2. FENTANYL-100 [Suspect]
     Indication: MYELITIS
     Dosage: Q72HR
     Route: 062
     Dates: start: 20111101, end: 20111201
  3. MORPHINE [Concomitant]
     Indication: BREAKTHROUGH PAIN
  4. FENTANYL-100 [Suspect]
     Indication: PAIN
     Dosage: Q72HR
     Route: 062
     Dates: start: 20111101, end: 20111201
  5. FENTANYL-100 [Suspect]
     Indication: BACK PAIN
     Dosage: Q72HR
     Route: 062
     Dates: start: 20111101, end: 20111201

REACTIONS (3)
  - APPLICATION SITE RASH [None]
  - APPLICATION SITE VESICLES [None]
  - BLISTER [None]
